FAERS Safety Report 26126626 (Version 2)
Quarter: 2025Q4

REPORT INFORMATION
  Report Type: Spontaneous
  Country: EU (occurrence: EU)
  Receive Date: 20251205
  Receipt Date: 20251209
  Transmission Date: 20260118
  Serious: Yes (Other)
  Sender: OTSUKA
  Company Number: None

PATIENT
  Age: 10 Year
  Sex: Male
  Weight: 55 kg

DRUGS (2)
  1. ARIPIPRAZOLE [Suspect]
     Active Substance: ARIPIPRAZOLE
     Indication: Autism spectrum disorder
     Dosage: 1 MG, QD (HE STARTED WITH 1 MG, SLOWLY INCREASED TO 3 MG)
     Dates: start: 20200615, end: 20250707
  2. ARIPIPRAZOLE [Suspect]
     Active Substance: ARIPIPRAZOLE
     Dosage: 3 MG, QD (3 TABLETS 1 ? PER DAY)

REACTIONS (1)
  - Libido decreased [Recovered/Resolved]
